FAERS Safety Report 5933013-9 (Version None)
Quarter: 2008Q4

REPORT INFORMATION
  Report Type: 
  Country: None (occurrence: None)
  Receive Date: 20081023
  Receipt Date: 20060515
  Transmission Date: 20090506
  Serious: Yes (Other)
  Sender: FDA-Public Use
  Company Number: 2006AL002052

PATIENT
  Age: 46 Year
  Sex: Female

DRUGS (5)
  1. CARBIDOPA + LEVODOPA [Suspect]
     Indication: PARKINSON'S DISEASE
     Dosage: PO
     Route: 048
  2. PRAMIPEXOLE DIHYDROCHLORIDE [Concomitant]
  3. AMOXICILLIN [Concomitant]
  4. QUININE [Concomitant]
  5. SERTRALINE [Concomitant]

REACTIONS (2)
  - ANAPHYLACTIC REACTION [None]
  - DRUG INTERACTION [None]
